FAERS Safety Report 7176279-2 (Version None)
Quarter: 2010Q4

REPORT INFORMATION
  Report Type: 
  Country: None (occurrence: None)
  Receive Date: 20101220
  Receipt Date: 20101213
  Transmission Date: 20110411
  Serious: Yes (Other)
  Sender: FDA-Public Use
  Company Number: DE-JNJFOC-20101108264

PATIENT
  Sex: Female
  Weight: 87 kg

DRUGS (4)
  1. RISPERDAL CONSTA [Suspect]
     Indication: ILL-DEFINED DISORDER
     Route: 030
     Dates: start: 20100915, end: 20101123
  2. RISPERDAL [Suspect]
     Indication: ILL-DEFINED DISORDER
     Route: 048
     Dates: start: 20100909, end: 20101123
  3. CIPRALEX [Concomitant]
     Route: 048
  4. OPIPRAMOL [Concomitant]
     Route: 048

REACTIONS (4)
  - BLOOD PROLACTIN INCREASED [None]
  - DRUG LEVEL INCREASED [None]
  - ERYTHEMA [None]
  - WEIGHT INCREASED [None]
